FAERS Safety Report 7816962-6 (Version None)
Quarter: 2011Q4

REPORT INFORMATION
  Report Type: 
  Country: None (occurrence: None)
  Receive Date: 20111017
  Receipt Date: 20111013
  Transmission Date: 20120403
  Serious: No
  Sender: FDA-Public Use
  Company Number: US-B.I. PHARMACEUTICALS,INC./RIDGEFIELD-2011-BP-22825BP

PATIENT
  Sex: Female

DRUGS (8)
  1. NEURONTIN [Concomitant]
     Indication: FIBROMYALGIA
     Dosage: 600 MG
     Route: 048
     Dates: start: 20010101
  2. PROZAC [Concomitant]
     Indication: ANXIETY
     Dosage: 20 MG
     Route: 048
     Dates: start: 20110801
  3. FLORAZEPAM [Concomitant]
     Indication: INSOMNIA
     Dosage: 15 MG
     Route: 048
     Dates: start: 19850101
  4. PRADAXA [Suspect]
     Indication: ATRIAL FIBRILLATION
     Dosage: 300 MG
     Route: 048
     Dates: start: 20110818
  5. LASIX [Concomitant]
     Indication: OEDEMA
     Dosage: 10 MG
     Route: 048
     Dates: start: 19800101
  6. TIZANIDINE HCL [Concomitant]
     Indication: MUSCLE SPASMS
     Dosage: 4 MG
     Route: 048
     Dates: start: 20010101
  7. CLARITIN [Concomitant]
     Indication: ALLERGIC SINUSITIS
     Dates: start: 19800101
  8. RYTHMOL [Concomitant]
     Indication: ARRHYTHMIA

REACTIONS (3)
  - DRY MOUTH [None]
  - PAIN IN JAW [None]
  - TOOTHACHE [None]
